FAERS Safety Report 4953307-3 (Version None)
Quarter: 2006Q1

REPORT INFORMATION
  Report Type: 
  Country: None (occurrence: None)
  Receive Date: 20060321
  Receipt Date: 20060307
  Transmission Date: 20060701
  Serious: Yes (Disabling)
  Sender: FDA-Public Use
  Company Number: 34161

PATIENT
  Sex: Female

DRUGS (1)
  1. TOBRADEX [Suspect]
     Indication: EAR INFECTION
     Dosage: OTIC
     Dates: start: 19990301

REACTIONS (6)
  - DEAFNESS UNILATERAL [None]
  - EAR INJURY [None]
  - PAIN [None]
  - POST PROCEDURAL COMPLICATION [None]
  - TYMPANIC MEMBRANE PERFORATION [None]
  - VERTIGO [None]
